FAERS Safety Report 5528625-0 (Version None)
Quarter: 2007Q4

REPORT INFORMATION
  Report Type: 
  Country: None (occurrence: None)
  Receive Date: 20071109
  Receipt Date: 20070409
  Transmission Date: 20080405
  Serious: Yes (Other)
  Sender: FDA-Public Use
  Company Number: PHEH2007US05232

PATIENT
  Age: 67 Year
  Sex: Female
  Weight: 50.8 kg

DRUGS (12)
  1. ESTRADERM [Suspect]
     Indication: MENOPAUSE
     Dosage: 0.05 MG, TWICE WEEKLY, TRANSDERMAL
     Route: 062
     Dates: start: 19920101, end: 20001005
  2. PROVERA [Suspect]
     Indication: MENOPAUSE
     Dosage: 5 MG, QD, ORAL
     Route: 048
     Dates: start: 19960204, end: 19980526
  3. CYCRIN [Suspect]
     Indication: MENOPAUSE
     Dosage: 5 MG, QD, ORAL
     Route: 048
     Dates: start: 19990425
  4. ESTROGENS SOL/INJ [Suspect]
     Indication: MENOPAUSE
  5. MEDROXYPROGESTERONE [Suspect]
     Indication: MENOPAUSE
     Dosage: 5 MG, ORAL
     Route: 048
     Dates: start: 19991005, end: 20010201
  6. CLIMARA [Suspect]
     Indication: MENOPAUSE
     Dosage: 0.05 MG, TRANSDERMAL
     Route: 062
     Dates: start: 20000203, end: 20010203
  7. PREMARIN [Suspect]
     Indication: MENOPAUSE
     Dosage: 1.25 MG, ORAL
     Route: 047
     Dates: start: 19910101
  8. ESTRACE [Suspect]
     Indication: MENOPAUSE
     Dosage: 2 MG, ORAL
     Route: 048
     Dates: start: 19910401
  9. DEPO-PROVERA SUSPENSION/INJ [Suspect]
  10. XANAX [Concomitant]
  11. ALPRAZOLAM [Concomitant]
  12. INDOCIN [Concomitant]

REACTIONS (14)
  - ARTHRITIS [None]
  - BREAST CANCER [None]
  - BREAST DISCHARGE [None]
  - EMOTIONAL DISTRESS [None]
  - FIBROCYSTIC BREAST DISEASE [None]
  - HOT FLUSH [None]
  - MALIGNANT BREAST LUMP REMOVAL [None]
  - MASS [None]
  - MENOPAUSAL SYMPTOMS [None]
  - OSTEOPENIA [None]
  - OSTEOPOROSIS [None]
  - OVARIAN CYST [None]
  - RADIOTHERAPY [None]
  - UNEVALUABLE EVENT [None]
